FAERS Safety Report 14440718 (Version 1)
Quarter: 2018Q1

REPORT INFORMATION
  Report Type: Spontaneous
  Country: DE (occurrence: DE)
  Receive Date: 20180125
  Receipt Date: 20180125
  Transmission Date: 20180509
  Serious: Yes (Other)
  Sender: FDA-Public Use
  Company Number: DE-GILEAD-2018-0317139

PATIENT
  Age: 87 Year
  Sex: Male
  Weight: 100 kg

DRUGS (16)
  1. RANOLAZINE. [Suspect]
     Active Substance: RANOLAZINE
     Indication: CORONARY ARTERY DISEASE
     Dosage: (2 X 375 MG)
     Route: 048
     Dates: start: 20171219
  2. ISDN AL [Concomitant]
     Dosage: 2 X 60 MG/DAY (1-1-0-0)
  3. METFORMIN AXCOUNT [Concomitant]
     Dosage: 3 X 850 MG/DAY (1-1-1-0)
  4. SIMVA ARISTO [Concomitant]
     Dosage: 20 MG/DAY (0-0-1-0)
  5. RANOLAZINE. [Suspect]
     Active Substance: RANOLAZINE
     Indication: ANGINA PECTORIS
  6. HCT DEXCEL [Concomitant]
     Dosage: 12.5 MG, QD (0.5-0-0-0)
  7. CANDESARTAN 1A PHARMA [Concomitant]
     Dosage: 32 MG,(1-0-0-0)
  8. ASPIRIN. [Concomitant]
     Active Substance: ASPIRIN
     Dosage: 100 MG/DAY (1-0-0-0)
  9. MOLSIDOMIN STADA [Concomitant]
     Dosage: 8 MG QD, (0-0-1-0)
  10. FINASTERIDE. [Concomitant]
     Active Substance: FINASTERIDE
     Dosage: 5 MG/DAY (1-0-0-0)
  11. INCRUSE ELLIPTA [Concomitant]
     Active Substance: UMECLIDINIUM BROMIDE
     Dosage: 55 MCG, 30 SINGLE DOSE, (1-0-0-0)
  12. BISOPROLOL 1A PHARMA [Concomitant]
     Active Substance: BISOPROLOL
     Dosage: 10 MG QD, (1-0-0-0)
  13. LERCANIDIPINE [Concomitant]
     Active Substance: LERCANIDIPINE
     Dosage: 2 X 10 MG/DAY (1-0-1-0)
  14. XELEVIA [Concomitant]
     Active Substance: SITAGLIPTIN PHOSPHATE
     Dosage: 25 MG / DAY (1-0-0-0)
  15. KALINOR (POTASSIUM BICARBONATE\POTASSIUM CITRATE) [Concomitant]
     Active Substance: POTASSIUM BICARBONATE\POTASSIUM CITRATE
     Dosage: 2 X 2.057G/0.78G/DAY (1-0-1-0)
  16. GRANUFINK PROSTA [Concomitant]
     Dosage: 340 MG/400 MG/ 75 MG/DAY (0-1-0-0)

REACTIONS (8)
  - Flatulence [Recovered/Resolved]
  - Diarrhoea [Recovered/Resolved]
  - Intentional product use issue [Unknown]
  - Urinary incontinence [Recovered/Resolved]
  - Respiratory distress [Recovered/Resolved]
  - Dizziness [Recovered/Resolved]
  - Muscular weakness [Recovered/Resolved]
  - Off label use [Recovered/Resolved]
